FAERS Safety Report 8389864-7 (Version None)
Quarter: 2012Q2

REPORT INFORMATION
  Report Type: 
  Country: None (occurrence: None)
  Receive Date: 20120521
  Receipt Date: 20120515
  Transmission Date: 20120825
  Serious: Yes (Hospitalization, Other)
  Sender: FDA-Public Use
  Company Number: 2006-150706-NL

PATIENT
  Age: 26 Year
  Sex: Female

DRUGS (4)
  1. DEPO-PROVERA [Suspect]
     Indication: CONTRACEPTION
     Dates: start: 20060321
  2. BIRTH CONTROL PILLS [Suspect]
     Indication: CONTRACEPTION
  3. NUVARING [Suspect]
     Indication: CONTRACEPTION
     Dosage: 1 DF, VAG
     Route: 067
     Dates: start: 20041102, end: 20061022
  4. IBUPROFEN [Concomitant]

REACTIONS (17)
  - NAUSEA [None]
  - ORTHOSTATIC HYPOTENSION [None]
  - ABORTION INDUCED [None]
  - URINARY TRACT INFECTION [None]
  - MENSTRUATION IRREGULAR [None]
  - PAIN IN EXTREMITY [None]
  - CONSTIPATION [None]
  - LOSS OF CONSCIOUSNESS [None]
  - ASPARTATE AMINOTRANSFERASE INCREASED [None]
  - CHILLS [None]
  - ALANINE AMINOTRANSFERASE INCREASED [None]
  - PULMONARY EMBOLISM [None]
  - DEEP VEIN THROMBOSIS [None]
  - ADENOMYOSIS [None]
  - OVARIAN CYST [None]
  - LYMPHADENOPATHY [None]
  - UTERINE LEIOMYOMA [None]
